FAERS Safety Report 4694891-7 (Version None)
Quarter: 2005Q2

REPORT INFORMATION
  Report Type: 
  Country: None (occurrence: None)
  Receive Date: 20050617
  Receipt Date: 20050606
  Transmission Date: 20051028
  Serious: Yes (Hospitalization, Other)
  Sender: FDA-Public Use
  Company Number: 2005087134

PATIENT
  Age: 54 Year
  Sex: Female

DRUGS (3)
  1. CELEBREX [Suspect]
     Indication: NEURALGIA
     Dosage: UNK (200 MG, AS NECESSARY), ORAL
     Route: 048
     Dates: start: 19990501
  2. CYCLOBENZAPRINE HYDROCHLORIDE [Concomitant]
  3. ACIPHEX [Concomitant]

REACTIONS (8)
  - KNEE ARTHROPLASTY [None]
  - LIMB OPERATION [None]
  - OSTEOARTHRITIS [None]
  - PAIN IN EXTREMITY [None]
  - PULMONARY EMBOLISM [None]
  - RENAL IMPAIRMENT [None]
  - STRESS [None]
  - WEIGHT DECREASED [None]
